FAERS Safety Report 10178340 (Version 1)
Quarter: 2014Q2

REPORT INFORMATION
  Report Type: Spontaneous
  Country: US (occurrence: None)
  Receive Date: 20140516
  Receipt Date: 20140516
  Transmission Date: 20141212
  Serious: No
  Sender: FDA-Public Use
  Company Number: None

PATIENT
  Age: 77 Year
  Sex: Female
  Weight: 72.58 kg

DRUGS (19)
  1. LINZESS [Suspect]
     Indication: CONSTIPATION
     Dosage: SALESMAN SAMPLE.
     Route: 048
     Dates: start: 20130617, end: 20130620
  2. LINZESS [Suspect]
     Indication: IRRITABLE BOWEL SYNDROME
     Dosage: SALESMAN SAMPLE.
     Route: 048
     Dates: start: 20130617, end: 20130620
  3. TOPROL [Concomitant]
  4. MOEXIPRIL HCL [Concomitant]
  5. ULTRAM ER [Concomitant]
  6. SINGULAR [Concomitant]
  7. MICRO-K [Concomitant]
  8. SIMVASTATIN [Concomitant]
  9. TRAMADOL [Concomitant]
  10. FUROIMIDE [Concomitant]
  11. TEKTURNA [Concomitant]
  12. BENTYL [Concomitant]
  13. CALCIUM [Concomitant]
  14. MULTI VITAMIN [Concomitant]
  15. OCUVITE [Concomitant]
  16. LORATIDIME [Concomitant]
  17. RANITIDINE [Concomitant]
  18. GLUCOSAMINE [Concomitant]
  19. TYLENOL [Concomitant]

REACTIONS (4)
  - Asthenia [None]
  - Fall [None]
  - Blood pressure decreased [None]
  - Heart rate abnormal [None]
